FAERS Safety Report 16347558 (Version 2)
Quarter: 2019Q3

REPORT INFORMATION
  Report Type: Report from Study
  Country: CA (occurrence: CA)
  Receive Date: 20190523
  Receipt Date: 20190828
  Transmission Date: 20191004
  Serious: Yes (Hospitalization, Other)
  Sender: FDA-Public Use
  Company Number: CA-BRISTOL-MYERS SQUIBB COMPANY-BMS-2017-034762

PATIENT
  Age: 84 Year
  Sex: Female

DRUGS (2)
  1. COSOPT [Suspect]
     Active Substance: DORZOLAMIDE HYDROCHLORIDE\TIMOLOL MALEATE
     Indication: GLAUCOMA
     Route: 065
  2. ABATACEPT [Suspect]
     Active Substance: ABATACEPT
     Indication: RHEUMATOID ARTHRITIS
     Dosage: 750 MG, Q4WK
     Route: 042
     Dates: start: 20140613

REACTIONS (24)
  - Loss of consciousness [Recovering/Resolving]
  - Scab [Recovering/Resolving]
  - Infusion site extravasation [Not Recovered/Not Resolved]
  - Urinary tract infection [Recovered/Resolved]
  - Headache [Recovering/Resolving]
  - Respiratory tract infection [Recovering/Resolving]
  - Cystitis [Recovering/Resolving]
  - Vein collapse [Unknown]
  - Cough [Unknown]
  - Nasopharyngitis [Recovering/Resolving]
  - Contusion [Unknown]
  - Injection [Recovered/Resolved]
  - Nasal congestion [Recovering/Resolving]
  - Gastroenteritis [Recovering/Resolving]
  - Insomnia [Recovered/Resolved]
  - Diarrhoea [Recovered/Resolved]
  - Fall [Recovering/Resolving]
  - Fatigue [Recovering/Resolving]
  - Oropharyngeal pain [Unknown]
  - Contusion [Recovering/Resolving]
  - Myalgia [Recovering/Resolving]
  - Cervical vertebral fracture [Recovering/Resolving]
  - Nausea [Recovered/Resolved]
  - Nasal dryness [Unknown]

NARRATIVE: CASE EVENT DATE: 20170413
